FAERS Safety Report 12294067 (Version 2)
Quarter: 2016Q2

REPORT INFORMATION
  Report Type: Spontaneous
  Country: BE (occurrence: BE)
  Receive Date: 20160422
  Receipt Date: 20160429
  Transmission Date: 20160815
  Serious: Yes (Life-Threatening, Other)
  Sender: FDA-Public Use
  Company Number: BE-BRISTOL-MYERS SQUIBB COMPANY-BMS-2016-028788

PATIENT
  Age: 75 Year
  Sex: Male

DRUGS (9)
  1. LASIX [Concomitant]
     Active Substance: FUROSEMIDE
     Indication: CARDIAC FAILURE
     Dosage: 40 MG, QD
     Route: 048
     Dates: start: 20160322
  2. LASIX [Concomitant]
     Active Substance: FUROSEMIDE
     Indication: PULMONARY OEDEMA
  3. FRAXIPARINE [Suspect]
     Active Substance: NADROPARIN CALCIUM
     Indication: PRODUCT USED FOR UNKNOWN INDICATION
     Dosage: 0.6 ML, QD
     Route: 058
     Dates: start: 20160322
  4. NOBITEN                            /01339101/ [Concomitant]
     Active Substance: NEBIVOLOL
     Indication: CARDIAC FAILURE
     Dosage: 2.5 MG, QD
     Route: 048
     Dates: start: 20160322
  5. PRAZEPAM [Concomitant]
     Active Substance: PRAZEPAM
     Indication: ANXIETY
     Dosage: 10 GTT, QD
     Route: 048
     Dates: start: 20160322
  6. SPIRONOLACTONE. [Concomitant]
     Active Substance: SPIRONOLACTONE
     Indication: PRODUCT USED FOR UNKNOWN INDICATION
     Dosage: 25 MG, QD
     Route: 048
     Dates: start: 20160322
  7. ELIQUIS [Suspect]
     Active Substance: APIXABAN
     Indication: CEREBROVASCULAR ACCIDENT PROPHYLAXIS
     Dosage: 5 MG, BID
     Route: 048
     Dates: start: 20160322
  8. LISINOPRIL. [Concomitant]
     Active Substance: LISINOPRIL
     Indication: CARDIAC FAILURE
     Dosage: 5 MG, QD
     Route: 048
     Dates: start: 20160322
  9. ASAFLOW [Suspect]
     Active Substance: ASPIRIN
     Indication: CARDIOVASCULAR EVENT PROPHYLAXIS
     Dosage: 80 MG, UNK
     Route: 065
     Dates: start: 20160322

REACTIONS (3)
  - Haemorrhage [Unknown]
  - Haematoma [Unknown]
  - Pleural effusion [Unknown]

NARRATIVE: CASE EVENT DATE: 20160325
